FAERS Safety Report 6166851-0 (Version None)
Quarter: 2009Q2

REPORT INFORMATION
  Report Type: 
  Country: None (occurrence: None)
  Receive Date: 20090424
  Receipt Date: 20090416
  Transmission Date: 20091009
  Serious: Yes (Congenital Anomaly)
  Sender: FDA-Public Use
  Company Number: A0743112A

PATIENT
  Sex: Male
  Weight: 2.7 kg

DRUGS (2)
  1. PAXIL [Suspect]
     Indication: DRUG USE FOR UNKNOWN INDICATION
  2. PAROXETINE HYDROCHLORIDE [Suspect]
     Indication: DRUG USE FOR UNKNOWN INDICATION

REACTIONS (15)
  - ADENOIDECTOMY [None]
  - ATRIAL SEPTAL DEFECT [None]
  - AUTISM [None]
  - CARDIAC MURMUR [None]
  - DRUG EXPOSURE DURING PREGNANCY [None]
  - EAR INFECTION [None]
  - HEMIPARESIS [None]
  - HERNIA [None]
  - INGUINAL HERNIA [None]
  - NEURAL TUBE DEFECT [None]
  - PATENT DUCTUS ARTERIOSUS [None]
  - PREMATURE BABY [None]
  - SINUSITIS [None]
  - SPEECH DISORDER DEVELOPMENTAL [None]
  - UMBILICAL HERNIA [None]
